FAERS Safety Report 6253944-2 (Version None)
Quarter: 2009Q3

REPORT INFORMATION
  Report Type: 
  Country: None (occurrence: None)
  Receive Date: 20090702
  Receipt Date: 20090625
  Transmission Date: 20100115
  Serious: Yes (Hospitalization, Other)
  Sender: FDA-Public Use
  Company Number: US-CELGENEUS-163-21880-09061892

PATIENT
  Sex: Male
  Weight: 95.4 kg

DRUGS (4)
  1. REVLIMID [Suspect]
     Route: 048
     Dates: start: 20090421, end: 20090621
  2. MELPHALAN [Suspect]
     Route: 048
     Dates: start: 20090421, end: 20090620
  3. PREDNISONE [Suspect]
     Route: 048
     Dates: start: 20090421, end: 20090620
  4. ASPIRIN [Concomitant]
     Route: 048

REACTIONS (3)
  - BACK PAIN [None]
  - MULTIPLE MYELOMA [None]
  - PATHOLOGICAL FRACTURE [None]
